FAERS Safety Report 4749279-7 (Version None)
Quarter: 2005Q3

REPORT INFORMATION
  Report Type: 
  Country: None (occurrence: None)
  Receive Date: 20050812
  Receipt Date: 20050509
  Transmission Date: 20060218
  Serious: Yes (Other)
  Sender: FDA-Public Use
  Company Number: 404394

PATIENT
  Age: 60 Year
  Sex: Male

DRUGS (2)
  1. PEGASYS [Suspect]
     Indication: DRUG USE FOR UNKNOWN INDICATION
     Dosage: 180 MCG 1 PER WEEK OTHER
     Route: 050
     Dates: start: 20050310
  2. COPEGUS [Suspect]
     Indication: DRUG USE FOR UNKNOWN INDICATION
     Dosage: ORAL
     Route: 048
     Dates: start: 20050310

REACTIONS (2)
  - CONSTIPATION [None]
  - PLATELET COUNT DECREASED [None]
